FAERS Safety Report 5041735-X (Version None)
Quarter: 2006Q2

REPORT INFORMATION
  Report Type: 
  Country: None (occurrence: None)
  Receive Date: 20060630
  Receipt Date: 20060622
  Transmission Date: 20061013
  Serious: Yes (Other)
  Sender: FDA-Public Use
  Company Number: 2006080688

PATIENT

DRUGS (2)
  1. VIAGRA [Suspect]
  2. CIALIS [Suspect]

REACTIONS (1)
  - VENTRICULAR EXTRASYSTOLES [None]
